FAERS Safety Report 5688591-4 (Version None)
Quarter: 2008Q1

REPORT INFORMATION
  Report Type: 
  Country: None (occurrence: None)
  Receive Date: 20080331
  Receipt Date: 20080319
  Transmission Date: 20080703
  Serious: Yes (Hospitalization)
  Sender: FDA-Public Use
  Company Number: PHHY2008AR03424

PATIENT
  Age: 74 Year
  Sex: Male

DRUGS (1)
  1. DIOVAN TRIPLE [Suspect]
     Indication: HYPERTENSION
     Dosage: UNK, QD
     Route: 048

REACTIONS (4)
  - CARDIAC OPERATION [None]
  - CORONARY ARTERY BYPASS [None]
  - HAEMORRHAGE [None]
  - PLEURAL EFFUSION [None]
